FAERS Safety Report 7529148-X (Version None)
Quarter: 2011Q2

REPORT INFORMATION
  Report Type: 
  Country: None (occurrence: None)
  Receive Date: 20110520
  Receipt Date: 20110329
  Transmission Date: 20111010
  Serious: No
  Sender: FDA-Public Use
  Company Number: 030354

PATIENT
  Sex: Male
  Weight: 62.1 kg

DRUGS (3)
  1. LACOSAMIDE [Suspect]
     Indication: CONVULSION
     Dosage: (100 MG BID, LAST DOSE 29-MAR-2011 ORAL)
     Route: 048
     Dates: start: 20100601
  2. KEPPRA [Suspect]
     Indication: CONVULSION
     Dosage: (1500 MG BID, LAST DOSE 29-MAR-2011 ORAL)
     Route: 048
     Dates: start: 20020101
  3. PHENOBARBITAL TAB [Concomitant]

REACTIONS (5)
  - INSOMNIA [None]
  - HYPERTENSION [None]
  - DYSPEPSIA [None]
  - PALPITATIONS [None]
  - ANXIETY [None]
